FAERS Safety Report 12632729 (Version 2)
Quarter: 2016Q3

REPORT INFORMATION
  Report Type: Spontaneous
  Country: US (occurrence: US)
  Receive Date: 20160808
  Receipt Date: 20160808
  Transmission Date: 20161109
  Serious: No
  Sender: FDA-Public Use
  Company Number: US-BEH-2015056629

PATIENT
  Sex: Female
  Weight: 42 kg

DRUGS (23)
  1. HIZENTRA [Suspect]
     Active Substance: HUMAN IMMUNOGLOBULIN G
     Indication: IMMUNODEFICIENCY COMMON VARIABLE
     Route: 058
  2. VITAMIN B [Concomitant]
     Active Substance: VITAMIN B
  3. DHEA [Concomitant]
     Active Substance: PRASTERONE
  4. PHOSPHALINE [Concomitant]
  5. CHLORELLA [Concomitant]
  6. THYROID [Concomitant]
     Active Substance: LEVOTHYROXINE\LIOTHYRONINE
  7. SINGULAIR [Concomitant]
     Active Substance: MONTELUKAST SODIUM
  8. XOPENEX [Concomitant]
     Active Substance: LEVALBUTEROL HYDROCHLORIDE
  9. HIZENTRA [Suspect]
     Active Substance: HUMAN IMMUNOGLOBULIN G
     Route: 058
     Dates: start: 201507
  10. PRENATAL [Concomitant]
     Active Substance: VITAMINS
  11. OMEGA-3 FISH OIL [Concomitant]
     Active Substance: FISH OIL\OMEGA-3 FATTY ACIDS
  12. EPIPEN [Concomitant]
     Active Substance: EPINEPHRINE
  13. ZINC SULFATE [Concomitant]
     Active Substance: ZINC SULFATE\ZINC SULFATE ANHYDROUS
  14. ADVAIR HFA [Concomitant]
     Active Substance: FLUTICASONE PROPIONATE\SALMETEROL XINAFOATE
  15. PROBIOTIC [Concomitant]
     Active Substance: PROBIOTICS NOS
  16. GLUTATHIONE [Concomitant]
     Active Substance: GLUTATHIONE
  17. COQ10 [Concomitant]
     Active Substance: UBIDECARENONE
  18. ACETAMINOPHEN. [Concomitant]
     Active Substance: ACETAMINOPHEN
  19. SPIRIVA [Concomitant]
     Active Substance: TIOTROPIUM BROMIDE MONOHYDRATE
  20. HIZENTRA [Suspect]
     Active Substance: HUMAN IMMUNOGLOBULIN G
     Route: 058
  21. VITAMIN D3 [Concomitant]
     Active Substance: CHOLECALCIFEROL
  22. DIPHENHYDRAMINE. [Concomitant]
     Active Substance: DIPHENHYDRAMINE
  23. LMX [Concomitant]
     Active Substance: LIDOCAINE

REACTIONS (2)
  - Weight gain poor [Unknown]
  - Asthma [Unknown]
